FAERS Safety Report 9016489 (Version 1)
Quarter: 2013Q1

REPORT INFORMATION
  Report Type: Spontaneous
  Country: US (occurrence: US)
  Receive Date: 20130116
  Receipt Date: 20130116
  Transmission Date: 20140127
  Serious: No
  Sender: FDA-Public Use
  Company Number: US-TEVA-380920USA

PATIENT
  Age: 21 Year
  Sex: Female
  Weight: 59.02 kg

DRUGS (3)
  1. PLAN B ONE-STEP [Suspect]
     Indication: POST COITAL CONTRACEPTION
     Dosage: 1.5 MILLIGRAM DAILY;
     Route: 048
     Dates: start: 20130101, end: 20130101
  2. LAMICTAL SR [Concomitant]
     Indication: CONVULSION
     Dosage: 200 MILLIGRAM DAILY;
     Route: 048
  3. NAPROXEN [Concomitant]
     Indication: DYSMENORRHOEA

REACTIONS (3)
  - Menstruation irregular [Not Recovered/Not Resolved]
  - Abdominal pain [Not Recovered/Not Resolved]
  - Fatigue [Not Recovered/Not Resolved]
